FAERS Safety Report 5373930-4 (Version None)
Quarter: 2007Q2

REPORT INFORMATION
  Report Type: 
  Country: None (occurrence: None)
  Receive Date: 20070628
  Receipt Date: 20070618
  Transmission Date: 20071010
  Serious: Yes (Death)
  Sender: FDA-Public Use
  Company Number: NL-PURDUE-GBR_2007_0003054

PATIENT
  Age: 82 Year
  Sex: Male

DRUGS (3)
  1. PALLADONE [Suspect]
     Indication: DRUG USE FOR UNKNOWN INDICATION
     Dosage: 26 MG, DAILY
     Route: 065
     Dates: start: 20060927
  2. ZOLADEX [Concomitant]
     Indication: DRUG USE FOR UNKNOWN INDICATION
     Route: 065
  3. NAPROSYN [Concomitant]
     Indication: DRUG USE FOR UNKNOWN INDICATION
     Dosage: 500 MG, BID
     Route: 065

REACTIONS (1)
  - PROSTATE CANCER [None]
